FAERS Safety Report 24280992 (Version 1)
Quarter: 2024Q3

REPORT INFORMATION
  Report Type: Spontaneous
  Country: US (occurrence: US)
  Receive Date: 20240904
  Receipt Date: 20240904
  Transmission Date: 20241017
  Serious: Yes (Other)
  Sender: MYLAN
  Company Number: US-MYLANLABS-2024M1079731

PATIENT
  Age: 50 Year
  Sex: Female

DRUGS (3)
  1. HEPARIN [Suspect]
     Active Substance: HEPARIN SODIUM
     Indication: Pulmonary embolism
     Dosage: UNK
     Route: 065
  2. HEPARIN [Suspect]
     Active Substance: HEPARIN SODIUM
     Indication: Deep vein thrombosis
  3. HEPARIN [Suspect]
     Active Substance: HEPARIN SODIUM
     Indication: Atrial appendage closure

REACTIONS (1)
  - Haemorrhagic transformation stroke [Unknown]
